FAERS Safety Report 4937029-0 (Version None)
Quarter: 2006Q1

REPORT INFORMATION
  Report Type: 
  Country: None (occurrence: None)
  Receive Date: 20060309
  Receipt Date: 20060223
  Transmission Date: 20060701
  Serious: Yes (Hospitalization)
  Sender: FDA-Public Use
  Company Number: US-MERCK-0602USA05652

PATIENT
  Age: 49 Year
  Sex: Male
  Weight: 105 kg

DRUGS (3)
  1. VIOXX [Suspect]
     Indication: PAIN MANAGEMENT
     Route: 048
     Dates: start: 20001227, end: 20040910
  2. RELAFEN [Concomitant]
     Route: 065
  3. ZOLOFT [Concomitant]
     Route: 065

REACTIONS (16)
  - ACUTE MYOCARDIAL INFARCTION [None]
  - ANGINA PECTORIS [None]
  - ANGINA UNSTABLE [None]
  - ARTERIOSCLEROSIS [None]
  - CARBUNCLE [None]
  - CORONARY ARTERY DISEASE [None]
  - COSTOCHONDRITIS [None]
  - DEPRESSION [None]
  - DYSPNOEA EXERTIONAL [None]
  - HYPERLIPIDAEMIA [None]
  - HYPERTENSION [None]
  - HYPOGLYCAEMIA [None]
  - INSOMNIA [None]
  - ORTHOSTATIC HYPOTENSION [None]
  - PERIODIC LIMB MOVEMENT DISORDER [None]
  - RESTLESS LEGS SYNDROME [None]
